FAERS Safety Report 9143529 (Version 1)
Quarter: 2013Q1

REPORT INFORMATION
  Report Type: Spontaneous
  Country: FR (occurrence: FR)
  Receive Date: 20130306
  Receipt Date: 20130306
  Transmission Date: 20140127
  Serious: Yes (Disabling)
  Sender: FDA-Public Use
  Company Number: FR-BAYER-2013-027232

PATIENT
  Age: 47 Year
  Sex: Female
  Weight: 71 kg

DRUGS (3)
  1. BETAFERON [Suspect]
     Indication: MULTIPLE SCLEROSIS
     Dosage: UNK
     Route: 058
     Dates: start: 200206, end: 20100601
  2. LYSANXIA [Concomitant]
     Dosage: 2 DF, QD
  3. DOLIPRANE [Concomitant]
     Dosage: PRN

REACTIONS (1)
  - Pulmonary arterial hypertension [Not Recovered/Not Resolved]
